FAERS Safety Report 7804585-4 (Version None)
Quarter: 2011Q4

REPORT INFORMATION
  Report Type: 
  Country: None (occurrence: None)
  Receive Date: 20111010
  Receipt Date: 20111004
  Transmission Date: 20120403
  Serious: Yes (Hospitalization)
  Sender: FDA-Public Use
  Company Number: US-AMGEN-USASP2011049762

PATIENT
  Age: 64 Year
  Sex: Female

DRUGS (3)
  1. ENBREL [Suspect]
     Indication: RHEUMATOID ARTHRITIS
     Dosage: 50 MG, QWK
     Dates: start: 20010101, end: 20110924
  2. ENBREL [Suspect]
     Dosage: 50 MG, QWK
     Dates: start: 20100101
  3. ENBREL [Suspect]
     Dosage: 25 MG, EVERY 4 TO 5 DAYS
     Dates: start: 20010101

REACTIONS (8)
  - MUSCULOSKELETAL STIFFNESS [None]
  - VERTIGO [None]
  - RHEUMATOID ARTHRITIS [None]
  - INTERVERTEBRAL DISC OPERATION [None]
  - GAIT DISTURBANCE [None]
  - BACK INJURY [None]
  - INTERVERTEBRAL DISC PROTRUSION [None]
  - PAIN [None]
